FAERS Safety Report 17242084 (Version 2)
Quarter: 2020Q1

REPORT INFORMATION
  Report Type: Spontaneous
  Country: IL (occurrence: IL)
  Receive Date: 20200107
  Receipt Date: 20200127
  Transmission Date: 20200409
  Serious: Yes (Other)
  Sender: FDA-Public Use
  Company Number: IL-BAYER-2020-002229

PATIENT
  Age: 13 Year
  Sex: Male

DRUGS (1)
  1. STIVARGA [Suspect]
     Active Substance: REGORAFENIB
     Indication: OSTEOSARCOMA METASTATIC
     Dosage: DAILY DOSE 80 MG (FOR 21 DAYS OF EVERY MONTH)
     Dates: start: 201907, end: 201910

REACTIONS (10)
  - Off label use [Recovered/Resolved]
  - Metastasis [Not Recovered/Not Resolved]
  - Mediastinum neoplasm [Not Recovered/Not Resolved]
  - Pulmonary mass [Not Recovered/Not Resolved]
  - Lymphadenopathy [Not Recovered/Not Resolved]
  - Mediastinal mass [Not Recovered/Not Resolved]
  - Product use in unapproved indication [Recovered/Resolved]
  - Pleural effusion [Not Recovered/Not Resolved]
  - Pleural mass [Not Recovered/Not Resolved]
  - Product use issue [None]

NARRATIVE: CASE EVENT DATE: 201907
